FAERS Safety Report 7556613-1 (Version None)
Quarter: 2011Q2

REPORT INFORMATION
  Report Type: 
  Country: None (occurrence: None)
  Receive Date: 20110610
  Receipt Date: 20110527
  Transmission Date: 20111010
  Serious: Yes (Hospitalization)
  Sender: FDA-Public Use
  Company Number: 2011SP024422

PATIENT
  Age: 75 Year
  Sex: Female
  Weight: 75 kg

DRUGS (9)
  1. KEPPRA [Concomitant]
  2. LECARDIP [Concomitant]
  3. DEXAMETHASONE SODIUM PHOSPHATE [Concomitant]
  4. EUTIROX [Concomitant]
  5. CONCORD [Concomitant]
  6. DINTOINA [Concomitant]
  7. TEMOZOLOMIDE [Suspect]
     Indication: GLIOBLASTOMA
     Dosage: 140 MG, QD, PO; 260 MG, PO; 260 MG, PO;
     Route: 048
     Dates: start: 20091123, end: 20091215
  8. TEMOZOLOMIDE [Suspect]
     Indication: GLIOBLASTOMA
     Dosage: 140 MG, QD, PO; 260 MG, PO; 260 MG, PO;
     Route: 048
     Dates: start: 20100113, end: 20100117
  9. TEMOZOLOMIDE [Suspect]
     Indication: GLIOBLASTOMA
     Dosage: 140 MG, QD, PO; 260 MG, PO; 260 MG, PO;
     Route: 048
     Dates: start: 20100217, end: 20100221

REACTIONS (3)
  - PULMONARY EMBOLISM [None]
  - URINARY TRACT INFECTION [None]
  - PNEUMONIA [None]
